FAERS Safety Report 9743203 (Version 1)
Quarter: 2013Q4

REPORT INFORMATION
  Report Type: Spontaneous
  Country: US (occurrence: US)
  Receive Date: 20131210
  Receipt Date: 20131210
  Transmission Date: 20140711
  Serious: Yes (Hospitalization)
  Sender: FDA-Public Use
  Company Number: US-GILEAD-2009-0025041

PATIENT
  Sex: Female
  Weight: 67.13 kg

DRUGS (15)
  1. LETAIRIS [Suspect]
     Indication: PULMONARY ARTERIAL HYPERTENSION
     Route: 048
     Dates: start: 20090112
  2. OXYGEN [Concomitant]
  3. REVATIO [Concomitant]
  4. COUMADIN [Concomitant]
  5. REMODULIN [Concomitant]
  6. ASPIRIN [Concomitant]
  7. FUROSEMIDE [Concomitant]
  8. ALDACTONE [Concomitant]
  9. SULAR [Concomitant]
  10. DIGOXIN [Concomitant]
  11. POTASSIUM CHLORIDE [Concomitant]
  12. HEPARIN [Concomitant]
  13. ALLOPURINOL [Concomitant]
  14. SODIUM CHLORIDE [Concomitant]
  15. FERROUS SULFATE [Concomitant]

REACTIONS (1)
  - Headache [Unknown]
